FAERS Safety Report 25946941 (Version 2)
Quarter: 2025Q4

REPORT INFORMATION
  Report Type: Report from Study
  Country: GB (occurrence: GB)
  Receive Date: 20251022
  Receipt Date: 20251025
  Transmission Date: 20260117
  Serious: Yes (Hospitalization)
  Sender: ABBVIE
  Company Number: GB-ABBVIE-6358301

PATIENT
  Sex: Female

DRUGS (2)
  1. SKYRIZI [Suspect]
     Active Substance: RISANKIZUMAB-RZAA
     Indication: Crohn^s disease
     Dosage: FORM STRENGTH:360MG/2.4ML, FIRST ADMIN DATE: 2025?SOLUTION FOR INJECTION CARTRIDGE ON-BODY DEVICE
     Route: 058
  2. SKYRIZI [Suspect]
     Active Substance: RISANKIZUMAB-RZAA
     Indication: Crohn^s disease
     Dosage: LAST ADMIN DATE: 2025
     Route: 042
     Dates: start: 20250515

REACTIONS (3)
  - Hospitalisation [Unknown]
  - Maternal exposure during pregnancy [Unknown]
  - Live birth [Unknown]
